FAERS Safety Report 7038526-7 (Version None)
Quarter: 2010Q4

REPORT INFORMATION
  Report Type: 
  Country: None (occurrence: None)
  Receive Date: 20101011
  Receipt Date: 20100624
  Transmission Date: 20110411
  Serious: No
  Sender: FDA-Public Use
  Company Number: US-PFIZER INC-2006115055

PATIENT
  Age: 66 Year
  Sex: Male

DRUGS (2)
  1. NEURONTIN [Suspect]
     Indication: NEURALGIA
     Dosage: 300 MG, UNK
  2. NEURONTIN [Suspect]
     Indication: PERIPHERAL NERVE INJURY

REACTIONS (2)
  - BLOOD GLUCOSE DECREASED [None]
  - MUSCULOSKELETAL STIFFNESS [None]
